FAERS Safety Report 21027717 (Version 1)
Quarter: 2022Q2

REPORT INFORMATION
  Report Type: Report from Study
  Country: US (occurrence: US)
  Receive Date: 20220630
  Receipt Date: 20220630
  Transmission Date: 20220720
  Serious: Yes (Hospitalization, Other)
  Sender: FDA-Public Use
  Company Number: US-ALNYLAM PHARMACEUTICALS, INC.-ALN-2022-001121

PATIENT

DRUGS (1)
  1. ONPATTRO [Suspect]
     Active Substance: PATISIRAN SODIUM
     Indication: Hereditary neuropathic amyloidosis
     Dosage: WEIGHT BASE DOSING, Q3W
     Route: 042
     Dates: start: 20181220

REACTIONS (11)
  - Neoplasm [Unknown]
  - Metastasis [Unknown]
  - Thyroid cancer [Unknown]
  - Gait disturbance [Unknown]
  - Balance disorder [Unknown]
  - Unevaluable event [Unknown]
  - Fall [Unknown]
  - Muscular weakness [Unknown]
  - Muscle spasms [Unknown]
  - Renal mass [Unknown]
  - Intervertebral disc protrusion [Unknown]

NARRATIVE: CASE EVENT DATE: 20220101
